FAERS Safety Report 7556663-5 (Version None)
Quarter: 2011Q2

REPORT INFORMATION
  Report Type: 
  Country: None (occurrence: None)
  Receive Date: 20110609
  Receipt Date: 20110322
  Transmission Date: 20111010
  Serious: Yes (Hospitalization, Other)
  Sender: FDA-Public Use
  Company Number: DSA_46852_2011

PATIENT
  Sex: Male

DRUGS (2)
  1. BUPROPION HYDROCHLORIDE [Suspect]
     Indication: DEPRESSION
     Dosage: (1 TABLET ORAL)
     Route: 048
     Dates: start: 20080101
  2. BUPROPION HYDROCHLORIDE [Suspect]
     Indication: ANXIETY
     Dosage: (1 TABLET ORAL)
     Route: 048
     Dates: start: 20080101

REACTIONS (6)
  - PRODUCT SUBSTITUTION ISSUE [None]
  - SUICIDAL IDEATION [None]
  - DEPRESSION [None]
  - EDUCATIONAL PROBLEM [None]
  - DRUG INEFFECTIVE [None]
  - DISEASE RECURRENCE [None]
